FAERS Safety Report 24416612 (Version 1)
Quarter: 2024Q4

REPORT INFORMATION
  Report Type: Spontaneous
  Country: US (occurrence: None)
  Receive Date: 20241009
  Receipt Date: 20241009
  Transmission Date: 20250114
  Serious: Yes (Hospitalization)
  Sender: Public
  Company Number: None

PATIENT
  Sex: Female

DRUGS (2)
  1. TADALAFIL [Suspect]
     Active Substance: TADALAFIL
     Indication: Pulmonary arterial hypertension
     Dosage: FREQUENCY : DAILY;?
     Route: 048
     Dates: start: 202203
  2. TYVASO DPI MMT KIT PWD (PAP) [Concomitant]

REACTIONS (6)
  - Fatigue [None]
  - Syncope [None]
  - Full blood count decreased [None]
  - Dyspepsia [None]
  - Weight fluctuation [None]
  - General physical health deterioration [None]
